FAERS Safety Report 7700111-9 (Version None)
Quarter: 2011Q3

REPORT INFORMATION
  Report Type: 
  Country: None (occurrence: None)
  Receive Date: 20110816
  Receipt Date: 20110809
  Transmission Date: 20111222
  Serious: Yes (Death)
  Sender: FDA-Public Use
  Company Number: JPI-P-014835

PATIENT
  Age: 82 Year
  Sex: Male

DRUGS (1)
  1. XYREM [Suspect]
     Dosage: 6 GM (3 GM, 2 IN 1 D), ORAL
     Route: 048

REACTIONS (1)
  - DEATH [None]
